FAERS Safety Report 17316219 (Version 3)
Quarter: 2020Q1

REPORT INFORMATION
  Report Type: Spontaneous
  Country: FR (occurrence: FR)
  Receive Date: 20200124
  Receipt Date: 20200303
  Transmission Date: 20200409
  Serious: Yes (Other)
  Sender: FDA-Public Use
  Company Number: FR-JNJFOC-20200132849

PATIENT
  Age: 80 Year
  Sex: Female
  Weight: 49 kg

DRUGS (9)
  1. TRAMADOL HYDROCHLORIDE. [Suspect]
     Active Substance: TRAMADOL HYDROCHLORIDE
     Indication: BACK PAIN
     Route: 048
  2. TRAMADOL HYDROCHLORIDE. [Suspect]
     Active Substance: TRAMADOL HYDROCHLORIDE
     Route: 048
     Dates: start: 2019
  3. INEXIUM                            /01479303/ [Concomitant]
     Active Substance: ESOMEPRAZOLE
     Dosage: UNK
     Dates: start: 201909, end: 201909
  4. TRAMADOL HYDROCHLORIDE. [Suspect]
     Active Substance: TRAMADOL HYDROCHLORIDE
     Route: 048
  5. AMOXICILLIN. [Suspect]
     Active Substance: AMOXICILLIN
     Indication: OROPHARYNGEAL PAIN
     Route: 048
  6. TRANXENE [Concomitant]
     Active Substance: CLORAZEPATE DIPOTASSIUM
     Dosage: 2 DOSAGE FORM, 1/DAY
     Route: 048
     Dates: start: 201909
  7. TRAMADOL HYDROCHLORIDE. [Suspect]
     Active Substance: TRAMADOL HYDROCHLORIDE
     Indication: BACK PAIN
     Route: 065
     Dates: start: 2013, end: 201909
  8. AMOXICILLIN. [Suspect]
     Active Substance: AMOXICILLIN
     Indication: COUGH
     Route: 065
  9. LIPANOR [Concomitant]
     Active Substance: CIPROFIBRATE
     Dosage: UNK
     Dates: start: 201909, end: 201909

REACTIONS (31)
  - Walking disability [Not Recovered/Not Resolved]
  - Mucosal pain [Recovering/Resolving]
  - Tongue eruption [Recovering/Resolving]
  - Vomiting [Unknown]
  - Oedema mucosal [Unknown]
  - Back pain [Unknown]
  - Fatigue [Unknown]
  - Parosmia [Not Recovered/Not Resolved]
  - Pruritus [Unknown]
  - Tinnitus [Not Recovered/Not Resolved]
  - Delirium [Unknown]
  - Peripheral swelling [Not Recovered/Not Resolved]
  - Paraesthesia [Not Recovered/Not Resolved]
  - Mouth swelling [Not Recovered/Not Resolved]
  - Lymphadenopathy [Not Recovered/Not Resolved]
  - Dyspepsia [Not Recovered/Not Resolved]
  - Feeling of body temperature change [Not Recovered/Not Resolved]
  - Swollen tongue [Recovering/Resolving]
  - Cough [Not Recovered/Not Resolved]
  - Head discomfort [Not Recovered/Not Resolved]
  - Ear swelling [Not Recovered/Not Resolved]
  - Urine abnormality [Unknown]
  - Pain [Unknown]
  - Oropharyngeal pain [Recovering/Resolving]
  - Taste disorder [Recovering/Resolving]
  - Bone pain [Unknown]
  - Product substitution issue [Unknown]
  - Dyspnoea [Not Recovered/Not Resolved]
  - Burning sensation [Unknown]
  - Myalgia [Not Recovered/Not Resolved]
  - Dizziness [Unknown]

NARRATIVE: CASE EVENT DATE: 201909
